FAERS Safety Report 6287679-7 (Version None)
Quarter: 2009Q3

REPORT INFORMATION
  Report Type: 
  Country: None (occurrence: None)
  Receive Date: 20090727
  Receipt Date: 20090727
  Transmission Date: 20100115
  Serious: Yes (Other)
  Sender: FDA-Public Use
  Company Number: None

PATIENT
  Age: 38 Year
  Sex: Female
  Weight: 61.2356 kg

DRUGS (1)
  1. THYROID TAB [Suspect]
     Indication: THYROID HORMONE REPLACEMENT THERAPY
     Dosage: 90MG A DAY, 3 TIMES A DAY, SL
     Route: 060
     Dates: start: 20070813, end: 20090721

REACTIONS (14)
  - ABORTION SPONTANEOUS [None]
  - ALOPECIA [None]
  - ARTHRALGIA [None]
  - DEPRESSION [None]
  - FATIGUE [None]
  - HYPOTHYROIDISM [None]
  - IRRITABILITY [None]
  - MENORRHAGIA [None]
  - MENSTRUAL DISORDER [None]
  - MIGRAINE [None]
  - MYALGIA [None]
  - PRODUCT FORMULATION ISSUE [None]
  - PSORIASIS [None]
  - RASH [None]
